FAERS Safety Report 24679983 (Version 2)
Quarter: 2024Q4

REPORT INFORMATION
  Report Type: Spontaneous
  Country: CN (occurrence: CN)
  Receive Date: 20241129
  Receipt Date: 20241212
  Transmission Date: 20250115
  Serious: Yes (Other)
  Sender: DAIICHI
  Company Number: CN-DSJP-DS-2024-111136-CN

PATIENT
  Age: 69 Year
  Sex: Male

DRUGS (2)
  1. EDOXABAN [Suspect]
     Active Substance: EDOXABAN
     Indication: Atrial fibrillation
     Dosage: 30 MG (1TABLET), QD
     Route: 065
     Dates: end: 20241126
  2. EDOXABAN [Suspect]
     Active Substance: EDOXABAN
     Dosage: 14 DOSAGE FORM (30 MG), QD
     Route: 065
     Dates: start: 20241127, end: 20241127

REACTIONS (2)
  - Overdose [Unknown]
  - No adverse event [Unknown]

NARRATIVE: CASE EVENT DATE: 20241127
